FAERS Safety Report 23909928 (Version 1)
Quarter: 2024Q2

REPORT INFORMATION
  Report Type: Spontaneous
  Country: HR (occurrence: HR)
  Receive Date: 20240528
  Receipt Date: 20240528
  Transmission Date: 20240716
  Serious: Yes (Other)
  Sender: FDA-Public Use
  Company Number: HR-SHIONOGI, INC-2024000994

PATIENT
  Age: 22 Year
  Sex: Male

DRUGS (7)
  1. CEFIDEROCOL SULFATE TOSYLATE [Suspect]
     Active Substance: CEFIDEROCOL SULFATE TOSYLATE
     Indication: Neutropenic sepsis
     Dosage: 2 G, 1 PER 8 HOUR
     Route: 065
     Dates: start: 20240130, end: 20240228
  2. CEFIDEROCOL SULFATE TOSYLATE [Suspect]
     Active Substance: CEFIDEROCOL SULFATE TOSYLATE
     Indication: Mucosal inflammation
     Dosage: 2 G, 1 PER 8 HOUR
     Route: 065
     Dates: start: 20240301, end: 20240314
  3. CEFIDEROCOL SULFATE TOSYLATE [Suspect]
     Active Substance: CEFIDEROCOL SULFATE TOSYLATE
     Indication: Pneumonia
  4. CEFIDEROCOL SULFATE TOSYLATE [Suspect]
     Active Substance: CEFIDEROCOL SULFATE TOSYLATE
     Indication: Respiratory failure
  5. COLISTIN [Concomitant]
     Active Substance: COLISTIN
     Indication: Pseudomonas infection
     Dosage: 4.5 M[IU], 12 HOUR
     Route: 065
  6. COLISTIN [Concomitant]
     Active Substance: COLISTIN
     Dosage: 4.5 M[IU], 12 HOUR
     Route: 065
  7. AMIKACIN [Concomitant]
     Active Substance: AMIKACIN
     Indication: Pseudomonas infection
     Dosage: 1500 MG, 24 HOUR
     Route: 065

REACTIONS (3)
  - Sepsis [Recovered/Resolved]
  - Platelet count decreased [Recovered/Resolved]
  - Thrombocytopenia [Recovered/Resolved]

NARRATIVE: CASE EVENT DATE: 20240226
